FAERS Safety Report 7417564-6 (Version None)
Quarter: 2011Q2

REPORT INFORMATION
  Report Type: 
  Country: None (occurrence: None)
  Receive Date: 20110415
  Receipt Date: 20110411
  Transmission Date: 20111010
  Serious: Yes (Hospitalization)
  Sender: FDA-Public Use
  Company Number: FR-B.I. PHARMACEUTICALS,INC./RIDGEFIELD-2011-FF-00337FF

PATIENT
  Sex: Female
  Weight: 69 kg

DRUGS (9)
  1. INIPOMP [Suspect]
     Indication: PROPHYLAXIS AGAINST GASTROINTESTINAL ULCER
     Dosage: 20 MG
     Route: 048
     Dates: start: 20101213
  2. ZOLPIDEM [Concomitant]
     Route: 048
     Dates: start: 20101225
  3. COZAAR [Concomitant]
     Indication: HYPERTENSION
     Dosage: 100 MG
     Route: 048
  4. ACTISKENAN [Concomitant]
     Indication: PAIN
     Dosage: 30 MG
     Route: 048
     Dates: start: 20101226, end: 20110104
  5. DISCOTRINE [Concomitant]
     Route: 062
  6. SKENAN [Concomitant]
     Indication: PAIN
     Dosage: 40 MG
     Route: 048
     Dates: start: 20101226, end: 20110104
  7. PRADAXA [Suspect]
     Indication: THROMBOSIS PROPHYLAXIS
     Dosage: 150 MG
     Route: 048
     Dates: start: 20101213, end: 20101229
  8. PRADAXA [Suspect]
     Indication: HIP ARTHROPLASTY
  9. CACIT VITAMINE D3 [Concomitant]
     Route: 048

REACTIONS (3)
  - DRUG INEFFECTIVE [None]
  - DRUG INTERACTION [None]
  - VENOUS THROMBOSIS [None]
